FAERS Safety Report 6203309-4 (Version None)
Quarter: 2009Q2

REPORT INFORMATION
  Report Type: 
  Country: None (occurrence: None)
  Receive Date: 20090527
  Receipt Date: 20090518
  Transmission Date: 20091009
  Serious: Yes (Other)
  Sender: FDA-Public Use
  Company Number: PHHY2009DE12258

PATIENT
  Sex: Male
  Weight: 80 kg

DRUGS (2)
  1. EXELON [Suspect]
     Indication: DEMENTIA
     Dosage: 4.6 MG/24 HOUR
     Route: 062
     Dates: start: 20090101
  2. EXELON [Suspect]
     Dosage: 9.5 MG/24 HOUR
     Route: 062
     Dates: start: 20090301, end: 20090301

REACTIONS (5)
  - DIZZINESS [None]
  - FALL [None]
  - GAIT DISTURBANCE [None]
  - NAUSEA [None]
  - SOMNOLENCE [None]
